FAERS Safety Report 19051251 (Version 1)
Quarter: 2021Q1

REPORT INFORMATION
  Report Type: Report from Study
  Country: BE (occurrence: BE)
  Receive Date: 20210323
  Receipt Date: 20210323
  Transmission Date: 20210420
  Serious: Yes (Death, Other)
  Sender: FDA-Public Use
  Company Number: BE-SUN PHARMACEUTICAL INDUSTRIES LTD-2021R1-287084

PATIENT
  Age: 59 Year
  Sex: Male

DRUGS (9)
  1. CEFTAZIDIME. [Suspect]
     Active Substance: CEFTAZIDIME
     Indication: COVID-19
     Dosage: UNK
     Route: 065
  2. TEMOCILLIN [Suspect]
     Active Substance: TEMOCILLIN
     Indication: COVID-19
     Dosage: UNK
     Route: 065
  3. GANCICLOVIR. [Suspect]
     Active Substance: GANCICLOVIR
     Indication: COVID-19
     Dosage: UNK
     Route: 065
  4. HYDROXYCHLOROQUINE [Suspect]
     Active Substance: HYDROXYCHLOROQUINE
     Indication: COVID-19
     Dosage: UNK
     Route: 065
  5. VANCOMYCIN HYDROCHLORIDE. [Suspect]
     Active Substance: VANCOMYCIN HYDROCHLORIDE
     Indication: COVID-19
     Dosage: UNK
     Route: 065
  6. FLUCLOXACILLIN [Suspect]
     Active Substance: FLUCLOXACILLIN
     Indication: COVID-19
     Dosage: UNK
     Route: 065
  7. CIPROFLOXACIN. [Suspect]
     Active Substance: CIPROFLOXACIN
     Indication: COVID-19
     Dosage: UNK
     Route: 065
  8. ACYCLOVIR. [Suspect]
     Active Substance: ACYCLOVIR
     Indication: COVID-19
     Dosage: UNK
     Route: 065
  9. OXACILLIN [Suspect]
     Active Substance: OXACILLIN SODIUM
     Indication: COVID-19
     Dosage: UNK
     Route: 065

REACTIONS (4)
  - Herpes simplex [Fatal]
  - Enterobacter infection [Fatal]
  - Pseudomonas infection [Fatal]
  - Staphylococcal infection [Fatal]
